FAERS Safety Report 8941742 (Version 2)
Quarter: 2013Q1

REPORT INFORMATION
  Report Type: Report from Study
  Country: GB (occurrence: GB)
  Receive Date: 20121203
  Receipt Date: 20130204
  Transmission Date: 20140127
  Serious: Yes (Disabling)
  Sender: FDA-Public Use
  Company Number: GB-CELGENEUS-167-21880-12113003

PATIENT
  Age: 53 Year
  Sex: Female

DRUGS (2)
  1. REVLIMID [Suspect]
     Indication: PLASMA CELL MYELOMA
     Route: 048
     Dates: start: 20121024, end: 20121113
  2. VORINOSTAT [Suspect]
     Indication: PLASMA CELL MYELOMA
     Route: 048
     Dates: start: 20121024, end: 20121113

REACTIONS (1)
  - Melanocytic naevus [Recovered/Resolved]
